FAERS Safety Report 4914868-3 (Version None)
Quarter: 2006Q1

REPORT INFORMATION
  Report Type: 
  Country: None (occurrence: None)
  Receive Date: 20060217
  Receipt Date: 20060210
  Transmission Date: 20060701
  Serious: Yes (Hospitalization)
  Sender: FDA-Public Use
  Company Number: CH-JNJFOC-20060202551

PATIENT
  Sex: Female

DRUGS (4)
  1. HALDOL [Suspect]
     Indication: DRUG USE FOR UNKNOWN INDICATION
     Route: 048
  2. VENLAFAXINE HCL [Suspect]
     Indication: DRUG USE FOR UNKNOWN INDICATION
     Route: 048
  3. AMISULPIRIDE [Suspect]
     Indication: SCHIZOAFFECTIVE DISORDER
     Route: 048
  4. LITHIUM [Concomitant]
     Route: 048

REACTIONS (4)
  - ANTICHOLINERGIC SYNDROME [None]
  - DRY MOUTH [None]
  - MYDRIASIS [None]
  - SINUS TACHYCARDIA [None]
